FAERS Safety Report 13144167 (Version 2)
Quarter: 2017Q1

REPORT INFORMATION
  Report Type: Spontaneous
  Country: TR (occurrence: TR)
  Receive Date: 20170124
  Receipt Date: 20170202
  Transmission Date: 20170428
  Serious: Yes (Other)
  Sender: FDA-Public Use
  Company Number: TR-PFIZER INC-2017023555

PATIENT
  Age: 39 Year
  Sex: Male
  Weight: 75 kg

DRUGS (9)
  1. GRANISETRON HCL [Concomitant]
     Dosage: 2X1 MG IV/PO
  2. LENOGRASTIM [Concomitant]
     Active Substance: LENOGRASTIM
     Dosage: 1X34 MU/DAY
  3. SIKLOFOSFAMID [Concomitant]
     Dosage: 1X500 MG, ONE CURE EVERY 4 MONTHS AND ONE CURE IN EVERY CURE
     Route: 042
  4. THIOGUANIN [Concomitant]
     Dosage: 2X40 MG/DAY2 ONE CURE MONTHLY, 5 DAYS IN EVERY CURE
  5. DAUNORUBICIN HYDROCHLORIDE. [Concomitant]
     Active Substance: DAUNORUBICIN HYDROCHLORIDE
     Dosage: 1X20 MG ONE CURE EVERY 4 MONTHS, 3RD AND 4TH DAYS ON EVERY CURE
  6. FILGRASTIM [Concomitant]
     Active Substance: FILGRASTIM
     Dosage: 1X30 MU
  7. ONDANSETRON /00955302/ [Concomitant]
     Dosage: 2X1 PO/IV
  8. ARA-C [Suspect]
     Active Substance: CYTARABINE
     Indication: ACUTE MYELOID LEUKAEMIA
     Dosage: 2X50 MG ONCE CURE MONTHLY, 5 DAYS IN EVERY CURE
  9. PALONOSETRON [Concomitant]
     Active Substance: PALONOSETRON
     Dosage: 1X4 MG/DAY

REACTIONS (2)
  - Vasculitis [Unknown]
  - Palpable purpura [Unknown]
